FAERS Safety Report 5369268-1 (Version None)
Quarter: 2007Q2

REPORT INFORMATION
  Report Type: 
  Country: None (occurrence: None)
  Receive Date: 20070621
  Receipt Date: 20070621
  Transmission Date: 20071010
  Serious: Yes (Hospitalization)
  Sender: FDA-Public Use
  Company Number: None

PATIENT
  Age: 64 Year
  Sex: Male
  Weight: 91 kg

DRUGS (4)
  1. ESCITALOPRAM [Suspect]
     Indication: MAJOR DEPRESSION
     Dosage: 10 MG OD - ORAL
     Route: 048
     Dates: start: 20070306, end: 20070430
  2. GLIMEPIRIDE [Concomitant]
  3. QUINAPRIL [Concomitant]
  4. CARVEDILOL [Concomitant]

REACTIONS (12)
  - ABNORMAL BEHAVIOUR [None]
  - AGGRESSION [None]
  - AGITATION [None]
  - DELUSION [None]
  - ECONOMIC PROBLEM [None]
  - FEAR [None]
  - HALLUCINATION [None]
  - HALLUCINATION, AUDITORY [None]
  - MAJOR DEPRESSION [None]
  - PARANOIA [None]
  - PSYCHOTIC DISORDER [None]
  - UNEMPLOYMENT [None]
